FAERS Safety Report 21097164 (Version 1)
Quarter: 2022Q3

REPORT INFORMATION
  Report Type: Spontaneous
  Country: US (occurrence: US)
  Receive Date: 20220719
  Receipt Date: 20220719
  Transmission Date: 20221027
  Serious: No
  Sender: FDA-Public Use
  Company Number: US-BRACCO-2021US03498

PATIENT
  Sex: Male

DRUGS (1)
  1. AXUMIN [Suspect]
     Active Substance: FLUCICLOVINE F-18
     Indication: Positron emission tomogram
     Dosage: 8.9 MCI, SINGLE
     Route: 042
     Dates: start: 20210728, end: 20210728

REACTIONS (3)
  - Drug ineffective [Unknown]
  - Injection site extravasation [Unknown]
  - No adverse event [Unknown]

NARRATIVE: CASE EVENT DATE: 20210728
